FAERS Safety Report 13493970 (Version 1)
Quarter: 2017Q2

REPORT INFORMATION
  Report Type: Spontaneous
  Country: US (occurrence: US)
  Receive Date: 20170427
  Receipt Date: 20170427
  Transmission Date: 20170830
  Serious: Yes (Hospitalization)
  Sender: FDA-Public Use
  Company Number: PHHY2017US060285

PATIENT
  Age: 18 Year
  Sex: Female

DRUGS (1)
  1. ETHINYLESTRADIOL, LEVONORGESTREL [Suspect]
     Active Substance: ETHINYL ESTRADIOL\LEVONORGESTREL
     Indication: CONTRACEPTION
     Route: 065

REACTIONS (1)
  - Solid pseudopapillary tumour of the pancreas [Recovered/Resolved]
